FAERS Safety Report 6414877-1 (Version None)
Quarter: 2009Q4

REPORT INFORMATION
  Report Type: 
  Country: None (occurrence: None)
  Receive Date: 20091026
  Receipt Date: 20091026
  Transmission Date: 20100525
  Serious: Yes (Other)
  Sender: FDA-Public Use
  Company Number: None

PATIENT
  Sex: Female
  Weight: 117.9352 kg

DRUGS (1)
  1. CLONIDINE [Suspect]
     Indication: HYPERTENSION
     Dosage: 0.3MG/DAY ONCE WEEKLY TOP
     Route: 061
     Dates: start: 20091009, end: 20091020

REACTIONS (2)
  - DRUG DOSE OMISSION [None]
  - PRODUCT ADHESION ISSUE [None]
